FAERS Safety Report 11390973 (Version 2)
Quarter: 2015Q4

REPORT INFORMATION
  Report Type: Report from Study
  Country: US (occurrence: US)
  Receive Date: 20150818
  Receipt Date: 20151110
  Transmission Date: 20160304
  Serious: No
  Sender: FDA-Public Use
  Company Number: US-VANDA PHARMACEUTICALS, INC-2015TASUS000838

PATIENT
  Age: 51 Year
  Sex: Female

DRUGS (1)
  1. HETLIOZ [Suspect]
     Active Substance: TASIMELTEON
     Indication: CIRCADIAN RHYTHM SLEEP DISORDER
     Dosage: 20 MG, UNK
     Route: 048
     Dates: start: 20150420

REACTIONS (5)
  - Pain [Not Recovered/Not Resolved]
  - Nightmare [Not Recovered/Not Resolved]
  - Drug dose omission [Unknown]
  - Therapy cessation [Unknown]
  - Fall [Not Recovered/Not Resolved]

NARRATIVE: CASE EVENT DATE: 2015
